FAERS Safety Report 9079792 (Version 1)
Quarter: 2013Q1

REPORT INFORMATION
  Report Type: Spontaneous
  Country: JP (occurrence: JP)
  Receive Date: 20130215
  Receipt Date: 20130215
  Transmission Date: 20140127
  Serious: Yes (Other)
  Sender: FDA-Public Use
  Company Number: JP-GLAXOSMITHKLINE-B0865334A

PATIENT
  Age: 64 Year
  Sex: Female

DRUGS (5)
  1. PAXIL [Suspect]
     Indication: PANIC DISORDER
     Dosage: 20MG PER DAY
     Route: 048
     Dates: start: 20100128, end: 201212
  2. LAMICTAL [Concomitant]
     Dosage: 25MG PER DAY
     Route: 048
     Dates: start: 201203, end: 201206
  3. RIVOTRIL [Concomitant]
     Route: 048
  4. LEXOTAN [Concomitant]
     Route: 048
  5. WYPAX [Concomitant]
     Route: 048

REACTIONS (7)
  - Parkinson^s disease [Unknown]
  - Parkinsonism [Unknown]
  - Restless legs syndrome [Unknown]
  - Dyskinesia [Unknown]
  - Amimia [Unknown]
  - Facial spasm [Unknown]
  - Salivary hypersecretion [Unknown]
